FAERS Safety Report 21849387 (Version 1)
Quarter: 2023Q1

REPORT INFORMATION
  Report Type: Spontaneous
  Country: US (occurrence: US)
  Receive Date: 20230111
  Receipt Date: 20230111
  Transmission Date: 20230418
  Serious: Yes (Hospitalization)
  Sender: FDA-Public Use
  Company Number: US-ELI_LILLY_AND_COMPANY-US202301000769

PATIENT
  Age: 73 Year
  Sex: Male
  Weight: 81.82 kg

DRUGS (1)
  1. BEBTELOVIMAB [Suspect]
     Active Substance: BEBTELOVIMAB
     Indication: COVID-19
     Dosage: 175 MG, SINGLE
     Route: 041
     Dates: start: 20221111, end: 20221111

REACTIONS (7)
  - Productive cough [Unknown]
  - Dyspnoea [Unknown]
  - Nasal congestion [Unknown]
  - Ocular hyperaemia [Unknown]
  - Lacrimation increased [Unknown]
  - Asthenia [Unknown]
  - Ear pain [Unknown]

NARRATIVE: CASE EVENT DATE: 20221115
